FAERS Safety Report 11933219 (Version 1)
Quarter: 2016Q1

REPORT INFORMATION
  Report Type: Spontaneous
  Country: JP (occurrence: JP)
  Receive Date: 20160121
  Receipt Date: 20160121
  Transmission Date: 20160526
  Serious: Yes (Hospitalization)
  Sender: FDA-Public Use
  Company Number: JP-UCBSA-2015042169

PATIENT
  Age: 79 Year
  Sex: Female

DRUGS (1)
  1. NEUPRO [Suspect]
     Active Substance: ROTIGOTINE
     Indication: PRODUCT USED FOR UNKNOWN INDICATION
     Dosage: 1MG/24H
     Route: 062

REACTIONS (3)
  - Abdominal pain [Recovered/Resolved]
  - Drug administered at inappropriate site [Unknown]
  - Gastric cancer [Unknown]
